FAERS Safety Report 7953621-3 (Version None)
Quarter: 2011Q4

REPORT INFORMATION
  Report Type: 
  Country: None (occurrence: None)
  Receive Date: 20111202
  Receipt Date: 20111123
  Transmission Date: 20120403
  Serious: Yes (Other)
  Sender: FDA-Public Use
  Company Number: ZA-ELI_LILLY_AND_COMPANY-ZA201111008131

PATIENT
  Age: 54 Year
  Sex: Male

DRUGS (1)
  1. HUMULIN 70/30 [Suspect]
     Indication: TYPE 2 DIABETES MELLITUS
     Dosage: UNK UNK, UNKNOWN
     Route: 058
     Dates: start: 20111101, end: 20111101

REACTIONS (4)
  - BLOOD GLUCOSE INCREASED [None]
  - MALAISE [None]
  - DRUG INEFFECTIVE [None]
  - FATIGUE [None]
